FAERS Safety Report 14471280 (Version 1)
Quarter: 2018Q1

REPORT INFORMATION
  Report Type: Spontaneous
  Country: US (occurrence: US)
  Receive Date: 20180130
  Receipt Date: 20180130
  Transmission Date: 20180509
  Serious: Yes (Hospitalization, Other)
  Sender: FDA-Public Use
  Company Number: None

PATIENT
  Sex: Female
  Weight: 47.25 kg

DRUGS (1)
  1. MAVYRET [Suspect]
     Active Substance: GLECAPREVIR\PIBRENTASVIR
     Dates: start: 20180119, end: 20180121

REACTIONS (6)
  - Panic attack [None]
  - Anger [None]
  - Derealisation [None]
  - Euphoric mood [None]
  - Agitation [None]
  - Feeling abnormal [None]

NARRATIVE: CASE EVENT DATE: 20180128
